FAERS Safety Report 11146538 (Version 5)
Quarter: 2015Q3

REPORT INFORMATION
  Report Type: Spontaneous
  Country: CN (occurrence: CN)
  Receive Date: 20150528
  Receipt Date: 20150820
  Transmission Date: 20151125
  Serious: Yes (Death, Other)
  Sender: FDA-Public Use
  Company Number: CN-ASTELLAS-2015US018307

PATIENT
  Sex: Male

DRUGS (3)
  1. PROGRAF [Suspect]
     Active Substance: TACROLIMUS\TACROLIMUS ANHYDROUS
     Indication: LIVER TRANSPLANT
     Dosage: 1 MG IN THE MORNING AND 0.5 MG IN THE EVENING, TWICE DAILY
     Route: 048
     Dates: start: 20150404, end: 20150409
  2. MYFORTIC [Concomitant]
     Active Substance: MYCOPHENOLATE SODIUM
     Indication: LIVER TRANSPLANT
     Dosage: 9000 MG, UNK/D
     Route: 048
     Dates: start: 20150404
  3. ATG-FRESENIUS [Suspect]
     Active Substance: LAPINE T-LYMPHOCYTE IMMUNE GLOBULIN
     Indication: LIVER TRANSPLANT
     Route: 042
     Dates: start: 20150402, end: 20150404

REACTIONS (6)
  - Cardio-respiratory arrest [Fatal]
  - Acute kidney injury [Unknown]
  - Hepatic function abnormal [Unknown]
  - Anuria [Unknown]
  - Heart rate increased [Unknown]
  - Metabolic acidosis [Fatal]

NARRATIVE: CASE EVENT DATE: 20150409
